FAERS Safety Report 10017969 (Version 1)
Quarter: 2014Q1

REPORT INFORMATION
  Report Type: Spontaneous
  Country: US (occurrence: US)
  Receive Date: 20140318
  Receipt Date: 20140318
  Transmission Date: 20141002
  Serious: No
  Sender: FDA-Public Use
  Company Number: US-PFIZER INC-2014076056

PATIENT
  Age: 87 Year
  Sex: Male
  Weight: 64 kg

DRUGS (1)
  1. PROTONIX [Suspect]
     Indication: GASTROOESOPHAGEAL REFLUX DISEASE
     Dosage: UNK, 2X/DAY
     Route: 048
     Dates: start: 201402, end: 201402

REACTIONS (2)
  - Nausea [Recovered/Resolved]
  - Malaise [Recovered/Resolved]
